FAERS Safety Report 21143925 (Version 2)
Quarter: 2022Q4

REPORT INFORMATION
  Report Type: Spontaneous
  Country: JP (occurrence: JP)
  Receive Date: 20220728
  Receipt Date: 20221014
  Transmission Date: 20230112
  Serious: Yes (Death, Hospitalization, Other)
  Sender: FDA-Public Use
  Company Number: JP-BoehringerIngelheim-2022-BI-183933

PATIENT
  Age: 69 Year
  Sex: Male

DRUGS (1)
  1. LINAGLIPTIN [Suspect]
     Active Substance: LINAGLIPTIN
     Indication: Type 2 diabetes mellitus

REACTIONS (8)
  - Respiratory failure [Fatal]
  - Pulmonary mass [Unknown]
  - Deep vein thrombosis [Unknown]
  - Cerebral infarction [Unknown]
  - Endocarditis [Unknown]
  - Septic pulmonary embolism [Recovering/Resolving]
  - Pemphigoid [Unknown]
  - Toxic epidermal necrolysis [Unknown]
